FAERS Safety Report 8382586-8 (Version None)
Quarter: 2012Q2

REPORT INFORMATION
  Report Type: 
  Country: None (occurrence: None)
  Receive Date: 20120524
  Receipt Date: 20120523
  Transmission Date: 20120825
  Serious: Yes (Death)
  Sender: FDA-Public Use
  Company Number: PHHY2012NL043895

PATIENT
  Sex: Male

DRUGS (4)
  1. ZOMETA [Suspect]
     Dosage: 4 MG / 100 ML ONCE IN 28 DAYS
     Route: 042
     Dates: start: 20120206
  2. ZOMETA [Suspect]
     Dosage: 4 MG / 100 ML ONCE IN 28 DAYS
     Route: 042
     Dates: start: 20120502
  3. ZOMETA [Suspect]
     Dosage: 4 MG / 100 ML ONCE IN 28 DAYS
     Route: 042
     Dates: start: 20120403
  4. ZOMETA [Suspect]
     Indication: PROSTATE CANCER METASTATIC
     Dosage: 4 MG / 100 ML ONCE IN 28 DAYS
     Route: 042

REACTIONS (1)
  - TERMINAL STATE [None]
